FAERS Safety Report 21851390 (Version 2)
Quarter: 2023Q2

REPORT INFORMATION
  Report Type: Spontaneous
  Country: JP (occurrence: JP)
  Receive Date: 20230112
  Receipt Date: 20230410
  Transmission Date: 20230721
  Serious: Yes (Hospitalization, Other)
  Sender: FDA-Public Use
  Company Number: JP-MSD-M2022-43212

PATIENT
  Age: 52 Year
  Sex: Male
  Weight: 80 kg

DRUGS (14)
  1. NOXAFIL [Suspect]
     Active Substance: POSACONAZOLE
     Indication: Antifungal prophylaxis
     Dosage: 300 MILLIGRAM, QD
     Route: 048
     Dates: start: 20220907, end: 20220919
  2. CEFEPIME HYDROCHLORIDE [Suspect]
     Active Substance: CEFEPIME HYDROCHLORIDE
     Dosage: UNK
     Route: 065
     Dates: end: 202210
  3. ENTRESTO [Suspect]
     Active Substance: SACUBITRIL\VALSARTAN
     Indication: Cardiovascular event prophylaxis
     Dosage: 100 MILLIGRAM, QD
     Route: 048
     Dates: start: 20220916, end: 202210
  4. LEVOFLOXACIN HEMIHYDRATE [Suspect]
     Active Substance: LEVOFLOXACIN
     Indication: Prophylaxis
     Dosage: 1 DOSAGE FORM, QD
     Route: 048
     Dates: start: 20220907, end: 202210
  5. IDAMYCIN [Suspect]
     Active Substance: IDARUBICIN HYDROCHLORIDE
     Indication: Acute myeloid leukaemia
     Dosage: 22 MILLIGRAM, QD
     Route: 041
     Dates: start: 20220908, end: 20220910
  6. CYTARABINE [Suspect]
     Active Substance: CYTARABINE
     Indication: Acute myeloid leukaemia
     Dosage: 180 MILLIGRAM, QD
     Route: 041
     Dates: start: 20220908, end: 20220914
  7. LANSOPRAZOLE [Suspect]
     Active Substance: LANSOPRAZOLE
     Indication: Prophylaxis
     Dosage: 15 MILLIGRAM, QD
     Route: 048
     Dates: start: 20220907
  8. FEBUXOSTAT [Suspect]
     Active Substance: FEBUXOSTAT
     Indication: Prophylaxis
     Dosage: 20 MILLIGRAM, QD
     Route: 048
     Dates: start: 20220907, end: 20220928
  9. SULFAMETHOXAZOLE\TRIMETHOPRIM [Suspect]
     Active Substance: SULFAMETHOXAZOLE\TRIMETHOPRIM
     Indication: Prophylaxis
     Dosage: 1 DOSAGE FORM, QD
     Route: 048
     Dates: start: 20220907, end: 20220928
  10. VESANOID [Suspect]
     Active Substance: TRETINOIN
     Indication: Acute promyelocytic leukaemia
     Dosage: 3 DOSAGE FORM, TID
     Route: 048
     Dates: start: 20220907
  11. PREDNISOLONE [Suspect]
     Active Substance: PREDNISOLONE
     Indication: Differentiation syndrome
     Dosage: 10 MILLIGRAM, QD
     Route: 048
     Dates: start: 20220908, end: 20220916
  12. SPIRONOLACTONE [Suspect]
     Active Substance: SPIRONOLACTONE
     Indication: Cardiovascular event prophylaxis
     Dosage: 25 MILLIGRAM, QD
     Route: 048
     Dates: start: 20220909
  13. AZOSEMIDE [Suspect]
     Active Substance: AZOSEMIDE
     Indication: Cardiovascular event prophylaxis
     Dosage: 30 MILLIGRAM, QD
     Route: 048
     Dates: start: 20220909
  14. BISOPROLOL FUMARATE [Suspect]
     Active Substance: BISOPROLOL FUMARATE
     Indication: Cardiovascular event prophylaxis
     Dosage: 1.25 MILLIGRAM, BID
     Route: 048
     Dates: start: 20220912

REACTIONS (4)
  - Taste disorder [Recovered/Resolved]
  - Rash [Recovered/Resolved]
  - Differentiation syndrome [Recovered/Resolved]
  - Myelosuppression [Recovered/Resolved]

NARRATIVE: CASE EVENT DATE: 20220908
